FAERS Safety Report 17669546 (Version 2)
Quarter: 2020Q3

REPORT INFORMATION
  Report Type: Spontaneous
  Country: DE (occurrence: DE)
  Receive Date: 20200415
  Receipt Date: 20200929
  Transmission Date: 20201102
  Serious: Yes (Other)
  Sender: FDA-Public Use
  Company Number: DE-SA-2020SA091236

PATIENT

DRUGS (2)
  1. AUBAGIO [Suspect]
     Active Substance: TERIFLUNOMIDE
     Indication: MULTIPLE SCLEROSIS RELAPSE
     Dosage: 14 MG, QD
     Route: 048
     Dates: start: 20190805
  2. CORTISONE [Concomitant]
     Active Substance: CORTISONE
     Dosage: UNK
     Route: 042
     Dates: start: 202007

REACTIONS (5)
  - Muscle hypertrophy [Recovered/Resolved]
  - Connective tissue disorder [Recovered/Resolved]
  - Muscle swelling [Recovered/Resolved]
  - Skin disorder [Unknown]
  - Myalgia [Recovered/Resolved]

NARRATIVE: CASE EVENT DATE: 2020
